FAERS Safety Report 10785691 (Version 4)
Quarter: 2015Q2

REPORT INFORMATION
  Report Type: Spontaneous
  Country: US (occurrence: US)
  Receive Date: 20150211
  Receipt Date: 20150413
  Transmission Date: 20150821
  Serious: Yes (Congenital Anomaly, Other)
  Sender: FDA-Public Use
  Company Number: US-APOTEX-2014AP005749

PATIENT
  Age: 4 Month
  Sex: Male

DRUGS (2)
  1. PAXIL [Suspect]
     Active Substance: PAROXETINE HYDROCHLORIDE
     Dosage: 20 MG, UNKNOWN
     Route: 064
     Dates: end: 2003
  2. PAXIL [Suspect]
     Active Substance: PAROXETINE HYDROCHLORIDE
     Indication: PRODUCT USED FOR UNKNOWN INDICATION
     Dosage: 10 UNK, UNK
     Route: 064
     Dates: end: 2003

REACTIONS (20)
  - Spina bifida [Unknown]
  - Abnormal behaviour [Unknown]
  - Fine motor delay [Unknown]
  - Autism spectrum disorder [Unknown]
  - Developmental delay [Unknown]
  - Melanocytic naevus [Unknown]
  - Plagiocephaly [Unknown]
  - Mental disorder [Unknown]
  - Bipolar disorder [Unknown]
  - Anxiety [Unknown]
  - Affective disorder [Unknown]
  - Communication disorder [Unknown]
  - Speech disorder [Unknown]
  - Foetal exposure during pregnancy [Unknown]
  - Congenital spinal cord anomaly [Unknown]
  - Testicular torsion [Unknown]
  - Attention deficit/hyperactivity disorder [Unknown]
  - Sensory disturbance [Unknown]
  - Syringomyelia [Unknown]
  - Tethered cord syndrome [Unknown]

NARRATIVE: CASE EVENT DATE: 200402
